FAERS Safety Report 12992007 (Version 1)
Quarter: 2016Q4

REPORT INFORMATION
  Report Type: Spontaneous
  Country: US (occurrence: US)
  Receive Date: 20161201
  Receipt Date: 20161201
  Transmission Date: 20170207
  Serious: No
  Sender: FDA-Public Use
  Company Number: US-THE RITEDOSE CORPORATION-2016RIT000077

PATIENT
  Age: 50 Year
  Sex: Female

DRUGS (4)
  1. IPRATROPIUM BROMIDE AND ALBUTEROL SULFATE [Suspect]
     Active Substance: ALBUTEROL SULFATE\IPRATROPIUM BROMIDE
     Indication: SINUSITIS
     Dosage: UNK
     Route: 055
     Dates: start: 20140518
  2. PROAIR HFA [Concomitant]
     Active Substance: ALBUTEROL SULFATE
     Dosage: UNK
  3. IPRATROPIUM BROMIDE AND ALBUTEROL SULFATE [Suspect]
     Active Substance: ALBUTEROL SULFATE\IPRATROPIUM BROMIDE
     Dosage: UNK, ONCE
     Route: 055
     Dates: start: 201605, end: 201605
  4. ADVAIR HFA [Concomitant]
     Active Substance: FLUTICASONE PROPIONATE\SALMETEROL XINAFOATE
     Dosage: UNK

REACTIONS (5)
  - Urticaria [Unknown]
  - Anosmia [Recovering/Resolving]
  - Generalised erythema [Unknown]
  - Alopecia [Unknown]
  - Ageusia [Recovering/Resolving]

NARRATIVE: CASE EVENT DATE: 201405
